FAERS Safety Report 7775490-7 (Version None)
Quarter: 2011Q3

REPORT INFORMATION
  Report Type: 
  Country: None (occurrence: None)
  Receive Date: 20110923
  Receipt Date: 20110921
  Transmission Date: 20111222
  Serious: Yes (Other)
  Sender: FDA-Public Use
  Company Number: PHHY2011NL83995

PATIENT
  Sex: Female

DRUGS (3)
  1. ZOMETA [Suspect]
     Indication: BREAST CANCER METASTATIC
     Dosage: 4 MG / 5 ML ONE PER 28 DAYS
     Route: 042
     Dates: start: 20090629
  2. ZOMETA [Suspect]
     Dosage: 4 MG / 5 ML ONE PER 28 DAYS
     Route: 042
     Dates: start: 20110921
  3. ZOMETA [Suspect]
     Dosage: 4 MG / 5 ML ONE PER 28 DAYS
     Route: 042
     Dates: start: 20110825

REACTIONS (2)
  - METASTASES TO BONE [None]
  - CENTRAL NERVOUS SYSTEM LESION [None]
